FAERS Safety Report 16648184 (Version 3)
Quarter: 2019Q3

REPORT INFORMATION
  Report Type: Report from Study
  Country: US (occurrence: US)
  Receive Date: 20190730
  Receipt Date: 20190905
  Transmission Date: 20191004
  Serious: Yes (Life-Threatening, Hospitalization)
  Sender: FDA-Public Use
  Company Number: US-EMD SERONO-E2B_90069668

PATIENT
  Age: 85 Year
  Sex: Male
  Weight: 93 kg

DRUGS (5)
  1. AVELUMAB [Suspect]
     Active Substance: AVELUMAB
     Indication: PROSTATE CANCER
     Dosage: 10 MG/KG, Q2WEEKS
     Route: 042
     Dates: start: 20190118, end: 20190719
  2. CARVEDILOL. [Suspect]
     Active Substance: CARVEDILOL
     Indication: HYPERTENSION
     Dosage: 12.5 MG, 2X/DAY (BID)
     Route: 048
     Dates: start: 20120613
  3. CARVEDILOL. [Suspect]
     Active Substance: CARVEDILOL
     Dosage: 3.125 MILLIGRAM, BID
     Route: 048
  4. LEUPROLIDE ACETATE. [Concomitant]
     Active Substance: LEUPROLIDE ACETATE
     Indication: PROSTATE CANCER
     Dosage: 22.5 MG, EVERY 3 MONTHS (Q3MONTHS)
     Route: 030
     Dates: start: 20180324
  5. APIXABAN [Suspect]
     Active Substance: APIXABAN
     Indication: ATRIAL FIBRILLATION
     Dosage: 2.5 MG, DAILY
     Route: 048
     Dates: start: 20190325

REACTIONS (1)
  - Anaemia [Recovered/Resolved]

NARRATIVE: CASE EVENT DATE: 20190724
